FAERS Safety Report 4736415-1 (Version None)
Quarter: 2005Q3

REPORT INFORMATION
  Report Type: 
  Country: None (occurrence: None)
  Receive Date: 20050804
  Receipt Date: 20050720
  Transmission Date: 20060218
  Serious: Yes (Hospitalization)
  Sender: FDA-Public Use
  Company Number: 233243K05USA

PATIENT
  Age: 57 Year
  Sex: Female

DRUGS (19)
  1. REBIF [Suspect]
     Indication: MULTIPLE SCLEROSIS
     Dosage: 44 MCG, 3 IN 1 WEEKS, SUBCUTANEOUS
     Route: 058
     Dates: start: 20050405
  2. RABEPRAZOLE SODIUM [Concomitant]
  3. CLONAZEPAM [Concomitant]
  4. CLORAZEPATE (CLORAZEPATE DIPOTASSIUM) [Concomitant]
  5. EXELON [Concomitant]
  6. NEURONTIN [Concomitant]
  7. ELAVIL [Concomitant]
  8. PROCARDIA XL [Concomitant]
  9. PROCHLORPERAZINE MALEATE [Concomitant]
  10. REMERON [Concomitant]
  11. AMANTADINE HCL [Concomitant]
  12. SINGULAIR (MONTELUKAST) [Concomitant]
  13. TRAZODONE (TRAZODONE) [Concomitant]
  14. COUMADIN [Concomitant]
  15. ALLEGRA [Concomitant]
  16. VIAGRA [Concomitant]
  17. CELEBREX [Concomitant]
  18. ACETYLSALICYLIC ACID SRT [Concomitant]
  19. XALATAN [Concomitant]

REACTIONS (5)
  - HEART RATE INCREASED [None]
  - LUNG DISORDER [None]
  - OXYGEN SATURATION DECREASED [None]
  - PULMONARY FUNCTION TEST DECREASED [None]
  - SCLERODERMA [None]
